FAERS Safety Report 6214720-X (Version None)
Quarter: 2009Q2

REPORT INFORMATION
  Report Type: 
  Country: None (occurrence: None)
  Receive Date: 20090604
  Receipt Date: 20090526
  Transmission Date: 20091009
  Serious: Yes (Hospitalization)
  Sender: FDA-Public Use
  Company Number: A0779285A

PATIENT
  Age: 55 Year
  Sex: Male
  Weight: 109.1 kg

DRUGS (9)
  1. AVANDIA [Suspect]
     Dosage: 4MG TWICE PER DAY
     Route: 048
     Dates: start: 19990101, end: 20050101
  2. METFORMIN HYDROCHLORIDE [Concomitant]
     Dates: start: 19900101
  3. PRAVACHOL [Concomitant]
  4. AMARYL [Concomitant]
  5. ZESTRIL [Concomitant]
  6. POTASSIUM CHLORIDE [Concomitant]
  7. ALBUTEROL [Concomitant]
  8. HUMULIN N [Concomitant]
  9. LASIX [Concomitant]

REACTIONS (9)
  - ATRIAL FIBRILLATION [None]
  - CARDIAC FAILURE CONGESTIVE [None]
  - CARDIOMYOPATHY [None]
  - CEREBROVASCULAR ACCIDENT [None]
  - DISABILITY [None]
  - MYOCARDIAL INFARCTION [None]
  - MYOCARDITIS [None]
  - PARALYSIS [None]
  - TRANSIENT ISCHAEMIC ATTACK [None]
